FAERS Safety Report 20407794 (Version 1)
Quarter: 2022Q1

REPORT INFORMATION
  Report Type: Spontaneous
  Country: BR (occurrence: BR)
  Receive Date: 20220131
  Receipt Date: 20220131
  Transmission Date: 20220424
  Serious: Yes (Hospitalization, Other)
  Sender: FDA-Public Use
  Company Number: BR-AMGEN-BRASP2022014616

PATIENT
  Age: 31 Year
  Sex: Male

DRUGS (4)
  1. INFLIXIMAB [Suspect]
     Active Substance: INFLIXIMAB
     Indication: Crohn^s disease
     Dosage: UNK
     Route: 065
  2. HYDROCORTISONE [Concomitant]
     Active Substance: HYDROCORTISONE
  3. AZATHIOPRINE [Concomitant]
     Active Substance: AZATHIOPRINE
  4. USTEKINUMAB [Concomitant]
     Active Substance: USTEKINUMAB

REACTIONS (12)
  - Clostridium test positive [Recovered/Resolved]
  - Crohn^s disease [Recovering/Resolving]
  - Immunodeficiency [Recovered/Resolved]
  - Cytomegalovirus test positive [Recovered/Resolved]
  - Gastrointestinal disorder [Recovering/Resolving]
  - Fungal endocarditis [Recovered/Resolved]
  - Gastrointestinal candidiasis [Recovered/Resolved]
  - Arthritis bacterial [Recovered/Resolved]
  - Oral candidiasis [Recovered/Resolved]
  - Intestinal obstruction [Recovering/Resolving]
  - Sepsis [Unknown]
  - Therapy non-responder [Unknown]
